FAERS Safety Report 6083136-1 (Version None)
Quarter: 2009Q1

REPORT INFORMATION
  Report Type: 
  Country: None (occurrence: None)
  Receive Date: 20090213
  Receipt Date: 20090213
  Transmission Date: 20090719
  Serious: Yes (Other)
  Sender: FDA-Public Use
  Company Number: None

PATIENT
  Sex: Male
  Weight: 19.9583 kg

DRUGS (4)
  1. SINGULAIR [Suspect]
     Indication: ASTHMA
     Dosage: 1 CHEWABLE TABLET ONCE/DAY ORAL
     Route: 048
     Dates: start: 20070517, end: 20081103
  2. SINGULAIR [Suspect]
     Indication: MULTIPLE ALLERGIES
     Dosage: 1 CHEWABLE TABLET ONCE/DAY ORAL
     Route: 048
     Dates: start: 20070517, end: 20081103
  3. FLOVENT [Concomitant]
  4. PREDNISONE [Concomitant]

REACTIONS (4)
  - ABNORMAL BEHAVIOUR [None]
  - AGGRESSION [None]
  - PAIN [None]
  - SCREAMING [None]
